FAERS Safety Report 5970884-4 (Version None)
Quarter: 2008Q4

REPORT INFORMATION
  Report Type: 
  Country: None (occurrence: None)
  Receive Date: 20081128
  Receipt Date: 20081117
  Transmission Date: 20090506
  Serious: Yes (Other)
  Sender: FDA-Public Use
  Company Number: PHHY2008CA28880

PATIENT

DRUGS (4)
  1. DIOVAN [Suspect]
     Dosage: 160 MG, QD
  2. NORVASC [Concomitant]
     Dosage: 10 MG, QD
     Dates: start: 20080809
  3. CALCIUM CHANNEL BLOCKERS [Concomitant]
  4. DIURETICS [Concomitant]

REACTIONS (3)
  - BLOOD PRESSURE INCREASED [None]
  - HERPES ZOSTER OTICUS [None]
  - PAIN [None]
